FAERS Safety Report 16539853 (Version 2)
Quarter: 2019Q4

REPORT INFORMATION
  Report Type: Spontaneous
  Country: CA (occurrence: CA)
  Receive Date: 20190708
  Receipt Date: 20191015
  Transmission Date: 20200122
  Serious: Yes (Hospitalization, Other)
  Sender: FDA-Public Use
  Company Number: CA-TEVA-2019-CA-1073045

PATIENT
  Age: 7 Year
  Sex: Female
  Weight: 28 kg

DRUGS (2)
  1. IBUPROFEN. [Concomitant]
     Active Substance: IBUPROFEN
     Indication: PRODUCT USED FOR UNKNOWN INDICATION
     Route: 065
  2. ONDANSETRON HYDROCHLORIDE. [Suspect]
     Active Substance: ONDANSETRON HYDROCHLORIDE
     Indication: GASTROENTERITIS
     Route: 048

REACTIONS (17)
  - Red blood cell count increased [Recovered/Resolved]
  - Urticaria [Recovered/Resolved]
  - Blood bilirubin increased [Recovered/Resolved]
  - Blood lactic acid increased [Recovered/Resolved]
  - Hypotension [Recovered/Resolved]
  - Chills [Recovered/Resolved]
  - Neutrophil count abnormal [Recovered/Resolved]
  - Tachycardia [Recovered/Resolved]
  - Haemoglobin increased [Recovered/Resolved]
  - Blood bilirubin abnormal [Recovered/Resolved]
  - Haemoglobin abnormal [Recovered/Resolved]
  - Monocyte count increased [Recovered/Resolved]
  - Pruritus [Recovered/Resolved]
  - Neutrophil count increased [Recovered/Resolved]
  - Carbon dioxide abnormal [Recovered/Resolved]
  - White blood cell count increased [Recovered/Resolved]
  - Carbon dioxide decreased [Recovered/Resolved]
